FAERS Safety Report 20870796 (Version 2)
Quarter: 2022Q3

REPORT INFORMATION
  Report Type: Report from Study
  Country: AR (occurrence: AR)
  Receive Date: 20220525
  Receipt Date: 20220723
  Transmission Date: 20221026
  Serious: Yes (Other)
  Sender: FDA-Public Use
  Company Number: AR-ABBVIE-22K-007-4407829-00

PATIENT
  Age: 46 Year
  Sex: Male

DRUGS (1)
  1. HUMIRA [Suspect]
     Active Substance: ADALIMUMAB
     Indication: Crohn^s disease
     Route: 058
     Dates: start: 20151215

REACTIONS (5)
  - Incisional hernia [Recovering/Resolving]
  - Post procedural fever [Recovered/Resolved]
  - Eventration repair [Unknown]
  - Procedural pain [Recovering/Resolving]
  - Post procedural discomfort [Recovering/Resolving]

NARRATIVE: CASE EVENT DATE: 20220426
